FAERS Safety Report 4399980-2 (Version None)
Quarter: 2004Q3

REPORT INFORMATION
  Report Type: 
  Country: None (occurrence: None)
  Receive Date: 20040716
  Receipt Date: 20040705
  Transmission Date: 20050211
  Serious: Yes (Life-Threatening, Hospitalization)
  Sender: FDA-Public Use
  Company Number: 2004222217DE

PATIENT
  Age: 61 Year
  Sex: Female
  Weight: 100 kg

DRUGS (5)
  1. BEXTRA [Suspect]
     Indication: ARTHRALGIA
     Dosage: 20 MG, QD, ORAL
     Route: 048
     Dates: start: 20040514, end: 20040521
  2. VALORON N [Concomitant]
  3. FRAGMIN [Concomitant]
  4. TRAMAL (TRAMADOL HYDROCHLORIDE) [Concomitant]
  5. NOPVAMINSULFON-RATIOPHARM (METAMIZOLE SODIUM) [Concomitant]

REACTIONS (5)
  - ALVEOLITIS [None]
  - BLOOD CREATININE INCREASED [None]
  - EXANTHEM [None]
  - RESPIRATORY FAILURE [None]
  - SKIN OEDEMA [None]
